FAERS Safety Report 4394849-1 (Version None)
Quarter: 2004Q3

REPORT INFORMATION
  Report Type: 
  Country: None (occurrence: None)
  Receive Date: 20040707
  Receipt Date: 20040624
  Transmission Date: 20050211
  Serious: Yes (Life-Threatening, Hospitalization)
  Sender: FDA-Public Use
  Company Number: 04P-044-0258090-00

PATIENT
  Age: 58 Year
  Sex: Female

DRUGS (4)
  1. ULTANE [Suspect]
     Indication: ANAESTHESIA
     Dosage: UNK
     Route: 065
     Dates: start: 20040324, end: 20040324
  2. SUCCINYLCHOLINE CHLORIDE [Concomitant]
  3. DISULFIRAM [Concomitant]
  4. ACETAMINOPHEN [Concomitant]

REACTIONS (4)
  - ANAEMIA [None]
  - ANAESTHETIC COMPLICATION [None]
  - COMA HEPATIC [None]
  - HEPATOTOXICITY [None]
